FAERS Safety Report 23783577 (Version 1)
Quarter: 2024Q2

REPORT INFORMATION
  Report Type: Spontaneous
  Country: US (occurrence: US)
  Receive Date: 20240425
  Receipt Date: 20240425
  Transmission Date: 20240716
  Serious: Yes (Hospitalization)
  Sender: FDA-Public Use
  Company Number: US-BAUSCH-BL-2024-006450

PATIENT
  Age: 64 Year
  Sex: Female

DRUGS (2)
  1. XIFAXAN [Suspect]
     Active Substance: RIFAXIMIN
     Indication: Hepatic cirrhosis
     Route: 065
     Dates: start: 202211
  2. XIFAXAN [Suspect]
     Active Substance: RIFAXIMIN
     Route: 065
     Dates: start: 202211

REACTIONS (6)
  - Hepatic cirrhosis [Unknown]
  - Condition aggravated [Unknown]
  - Dizziness [Unknown]
  - Inability to afford medication [Unknown]
  - Therapy interrupted [Unknown]
  - Incorrect dose administered [Unknown]
